FAERS Safety Report 15196904 (Version 2)
Quarter: 2019Q2

REPORT INFORMATION
  Report Type: Spontaneous
  Country: CA (occurrence: CA)
  Receive Date: 20180725
  Receipt Date: 20190415
  Transmission Date: 20190711
  Serious: Yes (Other)
  Sender: FDA-Public Use
  Company Number: CA-PFIZER INC-2018297134

PATIENT
  Age: 58 Year
  Sex: Female

DRUGS (8)
  1. METFORMIN [Suspect]
     Active Substance: METFORMIN HYDROCHLORIDE
     Indication: DIABETES MELLITUS
     Dosage: UNK, QD
     Route: 065
  2. BILASTINE [Concomitant]
     Active Substance: BILASTINE
     Dosage: UNK, QD
     Route: 048
     Dates: start: 201708
  3. REACTINE (CETIRIZINE HYDROCHLORIDE) [Concomitant]
     Active Substance: CETIRIZINE HYDROCHLORIDE
     Indication: CHRONIC SPONTANEOUS URTICARIA
     Dosage: UNK, BID
     Route: 048
     Dates: start: 2015, end: 201708
  4. XOLAIR [Suspect]
     Active Substance: OMALIZUMAB
     Indication: CHRONIC SPONTANEOUS URTICARIA
     Dosage: 300 MILLIGRAM, Q4WEEKS
     Route: 058
     Dates: start: 20180510
  5. BILASTINE [Concomitant]
     Active Substance: BILASTINE
     Indication: CHRONIC SPONTANEOUS URTICARIA
     Dosage: UNK, QD
     Route: 048
  6. PANTOPRAZOLE [Suspect]
     Active Substance: PANTOPRAZOLE
     Indication: GASTROINTESTINAL DISORDER
     Dosage: UNK, QD
     Route: 048
     Dates: start: 20150101
  7. HYDROCHLOROTHIAZIDE. [Concomitant]
     Active Substance: HYDROCHLOROTHIAZIDE
     Indication: BLOOD PRESSURE ABNORMAL
     Dosage: UNK, QD
     Route: 048
  8. BENADRYL [Concomitant]
     Active Substance: DIPHENHYDRAMINE HYDROCHLORIDE
     Indication: CHRONIC SPONTANEOUS URTICARIA
     Dosage: UNK
     Route: 048

REACTIONS (5)
  - Urticaria [Recovering/Resolving]
  - Pruritus [Unknown]
  - Intervertebral disc protrusion [Unknown]
  - Crying [Unknown]
  - Sluggishness [Unknown]

NARRATIVE: CASE EVENT DATE: 201709
